FAERS Safety Report 16114942 (Version 2)
Quarter: 2019Q2

REPORT INFORMATION
  Report Type: Spontaneous
  Country: JP (occurrence: JP)
  Receive Date: 20190325
  Receipt Date: 20190502
  Transmission Date: 20190711
  Serious: Yes (Death, Hospitalization, Other)
  Sender: FDA-Public Use
  Company Number: JP-REGENERON PHARMACEUTICALS, INC.-2019-22435

PATIENT

DRUGS (21)
  1. EYLEA [Suspect]
     Active Substance: AFLIBERCEPT
     Dosage: 0.05 ML, ONCE LEFT EYE
     Route: 031
     Dates: start: 20180319, end: 20180319
  2. EYLEA [Suspect]
     Active Substance: AFLIBERCEPT
     Indication: DIABETIC RETINAL OEDEMA
     Dosage: LEFT EYE, ONCE
     Route: 031
     Dates: start: 20171017, end: 20171017
  3. EYLEA [Suspect]
     Active Substance: AFLIBERCEPT
     Dosage: 0.05 ML, ONCE RIGHT EYE
     Route: 031
     Dates: start: 20180305, end: 20180305
  4. EYLEA [Suspect]
     Active Substance: AFLIBERCEPT
     Dosage: 0.05 ML, ONCE RIGHT EYE
     Route: 031
     Dates: start: 20181107, end: 20181107
  5. EYLEA [Suspect]
     Active Substance: AFLIBERCEPT
     Dosage: 0.05 ML, ONCE LEFT EYE
     Route: 031
     Dates: start: 20181217, end: 20181217
  6. EYLEA [Suspect]
     Active Substance: AFLIBERCEPT
     Dosage: 0.05 ML, ONCE LEFT EYE
     Route: 031
     Dates: start: 20190206, end: 20190206
  7. INSULIN [Concomitant]
     Active Substance: INSULIN NOS
     Indication: PRODUCT USED FOR UNKNOWN INDICATION
     Dosage: UNK
  8. EYLEA [Suspect]
     Active Substance: AFLIBERCEPT
     Indication: RETINAL VEIN OCCLUSION
     Dosage: RIGHT EYE, ONCE
     Route: 031
     Dates: start: 20170823, end: 20170823
  9. EYLEA [Suspect]
     Active Substance: AFLIBERCEPT
     Dosage: 0.05 ML, ONCE RIGHT EYE
     Route: 031
     Dates: start: 20180523, end: 20180523
  10. MAGMITT [Concomitant]
     Active Substance: MAGNESIUM OXIDE
     Indication: PRODUCT USED FOR UNKNOWN INDICATION
     Dosage: UNK
     Route: 048
  11. EYLEA [Suspect]
     Active Substance: AFLIBERCEPT
     Dosage: 0.05 ML, ONCE RIGHT EYE
     Route: 031
     Dates: start: 20180723, end: 20180723
  12. EYLEA [Suspect]
     Active Substance: AFLIBERCEPT
     Dosage: 0.05 ML, ONCE RIGHT EYE
     Route: 031
     Dates: start: 20180905, end: 20180905
  13. EYLEA [Suspect]
     Active Substance: AFLIBERCEPT
     Dosage: 0.05 ML, ONCE LEFT EYE
     Route: 031
     Dates: start: 20180122, end: 20180122
  14. EYLEA [Suspect]
     Active Substance: AFLIBERCEPT
     Dosage: 0.05 ML, ONCE LEFT EYE
     Route: 031
     Dates: start: 20180418, end: 20180418
  15. KENACORT [TRIAMCINOLONE] [Concomitant]
     Indication: DIABETIC RETINAL OEDEMA
     Dosage: DAILY DOSE .5 ML
     Route: 031
     Dates: start: 20171215
  16. EYLEA [Suspect]
     Active Substance: AFLIBERCEPT
     Dosage: 0.05 ML, ONCE RIGHT EYE
     Route: 031
     Dates: start: 20180402, end: 20180402
  17. EYLEA [Suspect]
     Active Substance: AFLIBERCEPT
     Dosage: 0.05 ML, ONCE LEFT EYE
     Route: 031
     Dates: start: 20180530, end: 20180530
  18. EYLEA [Suspect]
     Active Substance: AFLIBERCEPT
     Dosage: 0.05 ML, ONCE LEFT EYE
     Route: 031
     Dates: start: 20180702, end: 20180702
  19. EYLEA [Suspect]
     Active Substance: AFLIBERCEPT
     Dosage: 0.05 ML, ONCE LEFT EYE
     Route: 031
     Dates: start: 20181117, end: 20181117
  20. EYLEA [Suspect]
     Active Substance: AFLIBERCEPT
     Dosage: 0.05 ML, ONCE RIGHT EYE
     Route: 031
     Dates: start: 20190204, end: 20190204
  21. EYLEA [Suspect]
     Active Substance: AFLIBERCEPT
     Dosage: 0.05 ML, ONCE LEFT EYE
     Route: 031
     Dates: start: 20180903, end: 20180903

REACTIONS (5)
  - Generalised oedema [Unknown]
  - Death [Fatal]
  - Retinal vein occlusion [Unknown]
  - Dysuria [Unknown]
  - General physical health deterioration [Fatal]

NARRATIVE: CASE EVENT DATE: 201812
